FAERS Safety Report 4267205-4 (Version None)
Quarter: 2004Q1

REPORT INFORMATION
  Report Type: 
  Country: None (occurrence: None)
  Receive Date: 20040108
  Receipt Date: 20040108
  Transmission Date: 20041129
  Serious: Yes (Hospitalization)
  Sender: FDA-Public Use
  Company Number: None

PATIENT
  Age: 60 Year
  Sex: Male
  Weight: 54 kg

DRUGS (4)
  1. COUMADIN [Suspect]
     Dosage: 5 MG PO Q 5 PM
     Route: 048
     Dates: start: 20031212, end: 20031217
  2. ZITHROMAX [Suspect]
     Dosage: 500 MG IVPB QD
     Route: 042
     Dates: start: 20031210, end: 20031217
  3. HEPARIN [Concomitant]
  4. CEFTRIAXONE [Concomitant]

REACTIONS (3)
  - DIARRHOEA [None]
  - INTERNATIONAL NORMALISED RATIO INCREASED [None]
  - MELAENA [None]
